FAERS Safety Report 4721569-3 (Version None)
Quarter: 2005Q3

REPORT INFORMATION
  Report Type: 
  Country: None (occurrence: None)
  Receive Date: 20050721
  Receipt Date: 20041202
  Transmission Date: 20060218
  Serious: Yes (Life-Threatening, Hospitalization)
  Sender: FDA-Public Use
  Company Number: US-BRISTOL-MYERS SQUIBB COMPANY-12782884

PATIENT
  Age: 80 Year
  Sex: Female

DRUGS (16)
  1. COUMADIN [Suspect]
     Indication: CELLULITIS
     Dosage: NON-COMPLIANT
     Dates: end: 20041022
  2. COUMADIN [Suspect]
     Indication: AORTIC VALVE REPLACEMENT
     Dosage: NON-COMPLIANT
     Dates: end: 20041022
  3. LOVENOX [Suspect]
     Indication: ANTICOAGULANT THERAPY
     Dates: start: 20041001, end: 20040101
  4. CIPRO [Concomitant]
  5. ANCEF [Concomitant]
  6. INSULIN [Concomitant]
  7. NEURONTIN [Concomitant]
  8. BENEMID [Concomitant]
  9. ZYLOPRIM [Concomitant]
  10. LANOXIN [Concomitant]
  11. MEGACE [Concomitant]
  12. PROTONIX [Concomitant]
  13. ALDACTONE [Concomitant]
  14. MIRALAX [Concomitant]
  15. ACTOS [Concomitant]
  16. LASIX [Concomitant]

REACTIONS (1)
  - HAEMORRHAGE [None]
